FAERS Safety Report 5771312-4 (Version None)
Quarter: 2008Q2

REPORT INFORMATION
  Report Type: 
  Country: None (occurrence: None)
  Receive Date: 20080613
  Receipt Date: 20080606
  Transmission Date: 20081010
  Serious: Yes (Other)
  Sender: FDA-Public Use
  Company Number: US-BAYER-200821186NA

PATIENT
  Age: 21 Year
  Sex: Female
  Weight: 76 kg

DRUGS (2)
  1. MIRENA [Suspect]
     Indication: CONTRACEPTION
     Route: 015
     Dates: start: 20080317, end: 20080509
  2. FLUOXETINE [Concomitant]
     Indication: DEPRESSION
     Route: 048
     Dates: start: 20080319, end: 20080401

REACTIONS (5)
  - DEPRESSED MOOD [None]
  - IUCD COMPLICATION [None]
  - IUD MIGRATION [None]
  - POOR QUALITY SLEEP [None]
  - PROCEDURAL PAIN [None]
